FAERS Safety Report 4730465-7 (Version None)
Quarter: 2005Q3

REPORT INFORMATION
  Report Type: 
  Country: None (occurrence: None)
  Receive Date: 20050725
  Receipt Date: 20050415
  Transmission Date: 20060218
  Serious: No
  Sender: FDA-Public Use
  Company Number: USA050495808

PATIENT
  Age: 54 Year
  Sex: Female
  Weight: 62 kg

DRUGS (5)
  1. PROZAC [Suspect]
     Indication: MENOPAUSAL SYMPTOMS
     Dosage: 30 MG
     Dates: start: 20020101, end: 20050401
  2. STRATTERA [Suspect]
     Indication: ATTENTION DEFICIT/HYPERACTIVITY DISORDER
  3. CYMBALTA [Suspect]
     Dosage: 30 MG
     Dates: start: 20050301
  4. HORMONE REPLACEMENT THERAPY [Concomitant]
  5. LOVASTATIN [Concomitant]

REACTIONS (6)
  - CHANGE OF BOWEL HABIT [None]
  - DEPRESSION [None]
  - DRUG INEFFECTIVE [None]
  - ENURESIS [None]
  - FEELING ABNORMAL [None]
  - SOMNOLENCE [None]
